FAERS Safety Report 8069024-X (Version None)
Quarter: 2011Q4

REPORT INFORMATION
  Report Type: 
  Country: None (occurrence: None)
  Receive Date: 20111221
  Receipt Date: 20101229
  Transmission Date: 20120403
  Serious: Yes (Other)
  Sender: FDA-Public Use
  Company Number: PHHY2010US74112

PATIENT
  Sex: Male
  Weight: 24.7 kg

DRUGS (2)
  1. EXJADE [Suspect]
     Indication: SICKLE CELL ANAEMIA
     Dosage: 750 MG/DAY, ORAL
     Route: 048
     Dates: start: 20101102
  2. EXJADE [Suspect]
     Indication: SICKLE CELL ANAEMIA
     Dosage: 750 MG/DAY, ORAL
     Route: 048
     Dates: start: 20090804, end: 20101005

REACTIONS (1)
  - SICKLE CELL ANAEMIA WITH CRISIS [None]
